FAERS Safety Report 18485747 (Version 4)
Quarter: 2022Q3

REPORT INFORMATION
  Report Type: Spontaneous
  Country: US (occurrence: US)
  Receive Date: 20201110
  Receipt Date: 20220817
  Transmission Date: 20221027
  Serious: Yes (Other)
  Sender: FDA-Public Use
  Company Number: US-PFIZER INC-2019011690

PATIENT
  Age: 75 Year
  Sex: Female
  Weight: 127.01 kg

DRUGS (6)
  1. ARTHROTEC [Suspect]
     Active Substance: DICLOFENAC SODIUM\MISOPROSTOL
     Indication: Arthritis
     Dosage: UNK
     Route: 048
  2. ARTHROTEC [Suspect]
     Active Substance: DICLOFENAC SODIUM\MISOPROSTOL
     Dosage: 50/200, THREE TIMES A DAY
     Route: 048
  3. ARTHROTEC [Suspect]
     Active Substance: DICLOFENAC SODIUM\MISOPROSTOL
     Dosage: 1 DF, 3X/DAY (200/50 ONE TABLET BY MOUTH THREE TIMES DAILY)
     Route: 048
  4. MISOPROSTOL [Concomitant]
     Active Substance: MISOPROSTOL
     Indication: Arthritis
     Dosage: 200 UG, 3X/DAY (ONE TABLET 3 TIMES A DAY BY MOUTH)
     Route: 048
     Dates: start: 202008
  5. DICLOFENAC SODIUM [Concomitant]
     Active Substance: DICLOFENAC SODIUM
     Indication: Arthritis
     Dosage: 50 MG, 3X/DAY (ONE TABLET 3 TIMES A DAY BY MOUTH)
     Route: 048
     Dates: start: 202008
  6. REQUIP [Concomitant]
     Active Substance: ROPINIROLE HYDROCHLORIDE
     Indication: Restless legs syndrome
     Dosage: 1.5 MG, DAILY (1MG. ONE AND ONE HALF TABLETS AT NIGHT)

REACTIONS (3)
  - Spondylitis [Unknown]
  - Circumstance or information capable of leading to medication error [Unknown]
  - Product physical issue [Unknown]
